FAERS Safety Report 4824123-8 (Version None)
Quarter: 2005Q4

REPORT INFORMATION
  Report Type: 
  Country: None (occurrence: None)
  Receive Date: 20051108
  Receipt Date: 20051021
  Transmission Date: 20060501
  Serious: Yes (Hospitalization, Other)
  Sender: FDA-Public Use
  Company Number: USA0510111741

PATIENT
  Age: 50 Year
  Sex: Female

DRUGS (3)
  1. PROZAC [Suspect]
     Dosage: 60 MG
  2. CYMBALTA [Suspect]
     Dosage: 30 MG
  3. ACETAMINOPHEN [Concomitant]

REACTIONS (3)
  - ALANINE AMINOTRANSFERASE INCREASED [None]
  - DEPRESSION [None]
  - SUICIDAL IDEATION [None]
